FAERS Safety Report 22525900 (Version 2)
Quarter: 2023Q2

REPORT INFORMATION
  Report Type: Spontaneous
  Country: KR (occurrence: KR)
  Receive Date: 20230606
  Receipt Date: 20230608
  Transmission Date: 20230721
  Serious: Yes (Hospitalization, Other)
  Sender: FDA-Public Use
  Company Number: KR-ORGANON-O2306KOR000155

PATIENT
  Age: 59 Year
  Sex: Female

DRUGS (12)
  1. COZAAR [Suspect]
     Active Substance: LOSARTAN POTASSIUM
     Indication: Essential hypertension
     Dosage: 100 MILLIGRAM, 1 DAY
     Route: 048
     Dates: start: 2014
  2. TRASTUZUMAB [Suspect]
     Active Substance: TRASTUZUMAB
     Indication: Breast cancer female
     Dosage: 504 MILLIGRAM, 3 WEEK, LYOPHILIZED POWDER INJECTION FOR SOLUTION; VEIN
     Route: 042
     Dates: start: 20200325
  3. ACETAMINOPHEN [Concomitant]
     Active Substance: ACETAMINOPHEN
     Dosage: 600 MILLIGRAM, QD
     Route: 048
     Dates: start: 20200325
  4. DEXAMETHASONE [Concomitant]
     Active Substance: DEXAMETHASONE
     Dosage: 8 MILLIGRAM, QD, VEIN
     Route: 042
     Dates: start: 20200325
  5. DEXAMETHASONE [Concomitant]
     Active Substance: DEXAMETHASONE
     Dosage: 8 MILLIGRAM, QD,VEIN
     Route: 042
     Dates: start: 20200326
  6. FAMOTIDINE [Concomitant]
     Active Substance: FAMOTIDINE
     Dosage: 20 MILLIGRAM, QD, LYOPHILIZED POWDER INJECTION FOR SOLUTION,VEIN
     Route: 042
     Dates: start: 20200325
  7. METOCLOPRAMIDE HYDROCHLORIDE [Concomitant]
     Active Substance: METOCLOPRAMIDE HYDROCHLORIDE
     Dosage: 10 MILLIGRAM, QD, VEIN
     Route: 042
     Dates: start: 20200325
  8. ATORVASTATIN CALCIUM [Concomitant]
     Active Substance: ATORVASTATIN CALCIUM
     Indication: Essential hypertension
     Dosage: 10 MILLIGRAM, QD
     Route: 048
     Dates: start: 2014
  9. LAFUTIDINE [Concomitant]
     Active Substance: LAFUTIDINE
     Dosage: 10 MILLIGRAM, 0.5 DAY
     Route: 048
     Dates: start: 20200326
  10. MAGNESIUM HYDROXIDE [Concomitant]
     Active Substance: MAGNESIUM HYDROXIDE
     Indication: Prophylaxis
     Dosage: 500 MILLIGRAM, 0.5 DAY, UNCOATED TABLET
     Route: 048
     Dates: start: 20200715, end: 20200729
  11. ALPRAZOLAM [Concomitant]
     Active Substance: ALPRAZOLAM
     Dosage: 0.25 MILLIGRAM, QD, UNCOATED TABLET
     Route: 048
     Dates: start: 20200804, end: 20200804
  12. LACTULOSE [Concomitant]
     Active Substance: LACTULOSE
     Indication: Prophylaxis
     Dosage: UNK

REACTIONS (13)
  - Febrile neutropenia [Recovered/Resolved]
  - Headache [Recovering/Resolving]
  - Diarrhoea [Recovered/Resolved]
  - Neutropenia [Recovered/Resolved]
  - Dysaesthesia [Recovering/Resolving]
  - Haemorrhoids [Not Recovered/Not Resolved]
  - Rhinitis [Recovered/Resolved]
  - Onychomycosis [Recovered/Resolved]
  - Arthralgia [Recovering/Resolving]
  - Constipation [Recovered/Resolved]
  - Diarrhoea [Recovered/Resolved]
  - Stomatitis [Recovered/Resolved]
  - Lymphoedema [Recovering/Resolving]

NARRATIVE: CASE EVENT DATE: 20200325
